FAERS Safety Report 25918213 (Version 1)
Quarter: 2025Q4

REPORT INFORMATION
  Report Type: Spontaneous
  Country: EU (occurrence: EU)
  Receive Date: 20251014
  Receipt Date: 20251014
  Transmission Date: 20260117
  Serious: Yes (Disabling, Other)
  Sender: AUROBINDO
  Company Number: EU-TEVA-VS-3375894

PATIENT
  Age: 66 Year
  Sex: Male
  Weight: 125 kg

DRUGS (7)
  1. ASPIRIN [Suspect]
     Active Substance: ASPIRIN
     Indication: Bundle branch block right
     Dosage: 100 MILLIGRAM, ONCE A DAY, 1 TABLET IN THE MORNING
     Route: 065
  2. METFORMIN [Suspect]
     Active Substance: METFORMIN HYDROCHLORIDE
     Indication: Hyperglycaemia
     Dosage: 1000 MILLIGRAM
     Route: 065
  3. QUETIAPINE [Suspect]
     Active Substance: QUETIAPINE
     Indication: Mental disorder
     Dosage: 300 MILLIGRAM, 1 TABLET IN THE MORNING AND 2 TABLETS AT NIGHT TO HELP CALM AND RELAX DUE TO
     Route: 065
  4. ZOPICLONE [Suspect]
     Active Substance: ZOPICLONE
     Indication: Sleep disorder
     Dosage: 1 TABLET AT NIGHT
     Route: 065
  5. CIPRALEX [Suspect]
     Active Substance: ESCITALOPRAM OXALATE
     Indication: Impulse-control disorder
     Dosage: ONCE IN THE MORNING
     Route: 065
  6. GINKGO [Suspect]
     Active Substance: GINKGO
     Indication: Memory impairment
     Dosage: 120 MILLIGRAM, ONCE A DAY
     Route: 065
  7. CHOLECALCIFEROL [Suspect]
     Active Substance: CHOLECALCIFEROL
     Indication: Vitamin D deficiency
     Dosage: 2000 INTERNATIONAL UNIT, 3 TIMES A DAY
     Route: 065

REACTIONS (13)
  - Respiratory failure [Unknown]
  - Mental disorder [Unknown]
  - Behaviour disorder [Unknown]
  - Intervertebral disc protrusion [Unknown]
  - Spinal disorder [Unknown]
  - Pain [Unknown]
  - Spinal stenosis [Unknown]
  - Visual impairment [Unknown]
  - Restrictive pulmonary disease [Unknown]
  - Bronchitis chronic [Unknown]
  - Emphysema [Unknown]
  - Lung diffusion disorder [Unknown]
  - Walking aid user [Unknown]

NARRATIVE: CASE EVENT DATE: 20170101
